FAERS Safety Report 13826458 (Version 1)
Quarter: 2017Q3

REPORT INFORMATION
  Report Type: Not Available
  Country: CN (occurrence: CN)
  Receive Date: 20170802
  Receipt Date: 20170802
  Transmission Date: 20171127
  Serious: Yes (Congenital Anomaly)
  Sender: FDA-Public Use
  Company Number: CN-ANIPHARMA-2017-CN-000040

PATIENT
  Sex: 0

DRUGS (3)
  1. TOPIRAMATE. [Suspect]
     Active Substance: TOPIRAMATE
     Route: 015
  2. VALPROIC ACID (NON-SPECIFIC) [Suspect]
     Active Substance: VALPROIC ACID
     Route: 015
  3. FOLIC ACID. [Concomitant]
     Active Substance: FOLIC ACID
     Route: 015

REACTIONS (1)
  - Foetal chromosome abnormality [Not Recovered/Not Resolved]
